FAERS Safety Report 6527914-0 (Version None)
Quarter: 2010Q1

REPORT INFORMATION
  Report Type: 
  Country: None (occurrence: None)
  Receive Date: 20100105
  Receipt Date: 20100105
  Transmission Date: 20100710
  Serious: Yes (Hospitalization)
  Sender: FDA-Public Use
  Company Number: None

PATIENT
  Age: 65 Year
  Sex: Male
  Weight: 103.6 kg

DRUGS (2)
  1. FUROSEMIDE INTENSOL [Suspect]
     Indication: HYPERTENSION
     Dosage: 40 MG BID PO
     Route: 048
     Dates: start: 20050311
  2. FUROSEMIDE INTENSOL [Suspect]
     Indication: BENIGN PROSTATIC HYPERPLASIA
     Dosage: 1 MG HS PO
     Route: 048
     Dates: start: 20081230, end: 20091229

REACTIONS (1)
  - SYNCOPE [None]
